FAERS Safety Report 12610279 (Version 1)
Quarter: 2016Q3

REPORT INFORMATION
  Report Type: Spontaneous
  Country: US (occurrence: None)
  Receive Date: 20160729
  Receipt Date: 20160729
  Transmission Date: 20161109
  Serious: No
  Sender: FDA-Public Use
  Company Number: None

PATIENT
  Age: 53 Year
  Sex: Male
  Weight: 86.18 kg

DRUGS (4)
  1. UCERIS [Concomitant]
     Active Substance: BUDESONIDE
  2. APRISO [Concomitant]
     Active Substance: MESALAMINE
  3. AZATHIOPRINE. [Concomitant]
     Active Substance: AZATHIOPRINE
  4. ENTYVIO [Suspect]
     Active Substance: VEDOLIZUMAB
     Indication: COLITIS ULCERATIVE
     Dosage: INTO A VEIN

REACTIONS (1)
  - Visual impairment [None]

NARRATIVE: CASE EVENT DATE: 20150301
